FAERS Safety Report 21921258 (Version 2)
Quarter: 2023Q1

REPORT INFORMATION
  Report Type: Spontaneous
  Country: JP (occurrence: JP)
  Receive Date: 20230127
  Receipt Date: 20230210
  Transmission Date: 20230417
  Serious: Yes (Hospitalization, Other)
  Sender: FDA-Public Use
  Company Number: JP-ONO-2023JP001769

PATIENT
  Age: 87 Year
  Sex: Male

DRUGS (2)
  1. YERVOY [Suspect]
     Active Substance: IPILIMUMAB
     Indication: Non-small cell lung cancer recurrent
     Dosage: UNK
     Route: 041
  2. OPDIVO [Suspect]
     Active Substance: NIVOLUMAB
     Indication: Non-small cell lung cancer recurrent
     Dosage: UNK
     Route: 041

REACTIONS (5)
  - Ventricular extrasystoles [Unknown]
  - Fulminant type 1 diabetes mellitus [Unknown]
  - Secondary adrenocortical insufficiency [Unknown]
  - Immune-mediated hypothyroidism [Unknown]
  - Thyroid disorder [Unknown]
